FAERS Safety Report 18408587 (Version 1)
Quarter: 2020Q4

REPORT INFORMATION
  Report Type: Spontaneous
  Country: FR (occurrence: FR)
  Receive Date: 20201021
  Receipt Date: 20201021
  Transmission Date: 20210114
  Serious: Yes (Hospitalization, Other)
  Sender: FDA-Public Use
  Company Number: FR-AUROBINDO-AUR-APL-2020-052693

PATIENT
  Age: 51 Year
  Sex: Male

DRUGS (8)
  1. AVELUMAB [Suspect]
     Active Substance: AVELUMAB
     Indication: BLADDER TRANSITIONAL CELL CARCINOMA
     Dosage: UNK DURATION OF EACH CYCLE IS 3 WEEKS
     Route: 065
  2. METOCLOPRAMIDE. [Concomitant]
     Active Substance: METOCLOPRAMIDE
     Indication: NAUSEA
     Dosage: UNK
     Route: 065
     Dates: start: 202005
  3. CISPLATIN. [Suspect]
     Active Substance: CISPLATIN
     Indication: BLADDER TRANSITIONAL CELL CARCINOMA
     Dosage: 70 MILLIGRAM/SQ. METER, ONCE A DAY(REGIMEN 1, DAILY)
     Route: 041
     Dates: start: 20200409
  4. CARBOPLATIN. [Suspect]
     Active Substance: CARBOPLATIN
     Indication: BLADDER TRANSITIONAL CELL CARCINOMA
     Dosage: UNK UNK, ONCE A DAY
     Route: 042
     Dates: start: 20200709, end: 20200807
  5. INDAPAMIDE. [Concomitant]
     Active Substance: INDAPAMIDE
     Indication: HYPERTENSION
     Dosage: UNK
     Route: 065
     Dates: start: 2016
  6. DIFFU K [Concomitant]
     Active Substance: POTASSIUM CHLORIDE
     Indication: NAUSEA
     Dosage: UNK
     Route: 065
     Dates: start: 20200619
  7. GEMCITABINE. [Suspect]
     Active Substance: GEMCITABINE
     Indication: BLADDER TRANSITIONAL CELL CARCINOMA
     Dosage: INTRAVENOUS INFUSION OVER 30 MINUTES ON DAYS 1 AND 8 OF EACH 21-DAY CYCLE, DAILY
     Route: 041
     Dates: start: 20200409, end: 20200807
  8. FUNGIZONE [Concomitant]
     Active Substance: AMPHOTERICIN B
     Indication: NAUSEA
     Dosage: UNK
     Route: 065
     Dates: start: 20200619

REACTIONS (2)
  - Off label use [Unknown]
  - Sepsis [Not Recovered/Not Resolved]

NARRATIVE: CASE EVENT DATE: 20200825
